FAERS Safety Report 15290243 (Version 1)
Quarter: 2018Q3

REPORT INFORMATION
  Report Type: Spontaneous
  Country: JP (occurrence: JP)
  Receive Date: 20180817
  Receipt Date: 20180817
  Transmission Date: 20181010
  Serious: Yes (Hospitalization, Other)
  Sender: FDA-Public Use
  Company Number: JP-SA-2018SA224414

PATIENT
  Age: 60 Year
  Sex: Female

DRUGS (9)
  1. FLUTIFORM [Concomitant]
     Active Substance: FLUTICASONE PROPIONATE\FORMOTEROL FUMARATE
     Route: 065
  2. CLARITHROMYCIN. [Concomitant]
     Active Substance: CLARITHROMYCIN
     Route: 065
  3. TRAMCET [Concomitant]
     Active Substance: ACETAMINOPHEN\TRAMADOL
     Route: 065
  4. PREDNISOLONE. [Suspect]
     Active Substance: PREDNISOLONE
     Indication: ASTHMA
     Dosage: 2.5 MG, QD
     Route: 048
  5. SPIRIVA [Concomitant]
     Active Substance: TIOTROPIUM BROMIDE MONOHYDRATE
     Route: 065
  6. RABEPRAZOLE SODIUM. [Concomitant]
     Active Substance: RABEPRAZOLE SODIUM
     Route: 065
  7. XYZAL [Suspect]
     Active Substance: LEVOCETIRIZINE DIHYDROCHLORIDE
     Indication: ASTHMA
     Dosage: 5 MG, BID
     Route: 048
  8. MEPOLIZUMAB [Suspect]
     Active Substance: MEPOLIZUMAB
     Indication: ASTHMA
     Dosage: 100 MG, UNK
     Route: 058
     Dates: start: 20180612
  9. ALFACALCIDOL [Concomitant]
     Active Substance: ALFACALCIDOL
     Route: 065

REACTIONS (6)
  - Pyrexia [Recovering/Resolving]
  - Condition aggravated [Unknown]
  - Off label use [Unknown]
  - Inappropriate schedule of drug administration [Unknown]
  - Pneumonia [Recovering/Resolving]
  - Infection susceptibility increased [Unknown]

NARRATIVE: CASE EVENT DATE: 20180623
